FAERS Safety Report 8246651-8 (Version None)
Quarter: 2012Q1

REPORT INFORMATION
  Report Type: 
  Country: None (occurrence: None)
  Receive Date: 20120330
  Receipt Date: 20120322
  Transmission Date: 20120608
  Serious: Yes (Other)
  Sender: FDA-Public Use
  Company Number: JP-JNJFOC-20120307560

PATIENT
  Sex: Female

DRUGS (2)
  1. GALANTAMINE HYDROBROMIDE [Suspect]
     Indication: DEMENTIA
     Dosage: APPROXIMATELY 1 YEAR
     Route: 048
  2. SUNRYTHM [Concomitant]
     Route: 065

REACTIONS (6)
  - HYPOAESTHESIA [None]
  - DYSPNOEA [None]
  - ANGINA PECTORIS [None]
  - DEPRESSION [None]
  - PALPITATIONS [None]
  - EXTRASYSTOLES [None]
